FAERS Safety Report 13625610 (Version 1)
Quarter: 2017Q2

REPORT INFORMATION
  Report Type: Spontaneous
  Country: LT (occurrence: LT)
  Receive Date: 20170607
  Receipt Date: 20170607
  Transmission Date: 20170830
  Serious: Yes (Hospitalization)
  Sender: FDA-Public Use
  Company Number: LT-PFIZER INC-2017249828

PATIENT
  Age: 25 Year
  Sex: Female

DRUGS (1)
  1. CARDACE [Suspect]
     Active Substance: RAMIPRIL
     Dosage: 280 MG, UNK
     Route: 048
     Dates: start: 20170430

REACTIONS (3)
  - Suicide attempt [Recovered/Resolved]
  - Intentional overdose [Recovered/Resolved]
  - Tachycardia [Recovered/Resolved]

NARRATIVE: CASE EVENT DATE: 20170430
